FAERS Safety Report 5806160-X (Version None)
Quarter: 2008Q3

REPORT INFORMATION
  Report Type: 
  Country: None (occurrence: None)
  Receive Date: 20080710
  Receipt Date: 20080703
  Transmission Date: 20090109
  Serious: Yes (Hospitalization)
  Sender: FDA-Public Use
  Company Number: CH-AVENTIS-200816370GDDC

PATIENT
  Age: 61 Year
  Sex: Male

DRUGS (1)
  1. ARAVA [Suspect]
     Route: 048
     Dates: start: 20080303, end: 20080619

REACTIONS (3)
  - JAUNDICE [None]
  - LIVER INJURY [None]
  - PRURITUS [None]
